FAERS Safety Report 19374368 (Version 1)
Quarter: 2021Q2

REPORT INFORMATION
  Report Type: Spontaneous
  Country: None (occurrence: CZ)
  Receive Date: 20210603
  Receipt Date: 20210603
  Transmission Date: 20210717
  Serious: Yes (Other)
  Sender: FDA-Public Use
  Company Number: CZ-STALLERGENES SAS-2112337

PATIENT
  Age: 28 Year
  Sex: Male

DRUGS (1)
  1. ORALAIR [Suspect]
     Active Substance: ANTHOXANTHUM ODORATUM POLLEN\DACTYLIS GLOMERATA POLLEN\LOLIUM PERENNE POLLEN\PHLEUM PRATENSE POLLEN\POA PRATENSIS POLLEN
     Indication: SEASONAL ALLERGY
     Route: 060
     Dates: start: 20201201, end: 20201203

REACTIONS (2)
  - Salivary gland mucocoele [Recovered/Resolved]
  - Oral papilloma [Recovered/Resolved]

NARRATIVE: CASE EVENT DATE: 20201202
